FAERS Safety Report 21163625 (Version 1)
Quarter: 2022Q3

REPORT INFORMATION
  Report Type: Spontaneous
  Country: US (occurrence: US)
  Receive Date: 20220802
  Receipt Date: 20220802
  Transmission Date: 20221027
  Serious: Yes (Other)
  Sender: FDA-Public Use
  Company Number: US-COOPERSURGICAL, INC.-US-2022CPS000997

PATIENT
  Sex: Female
  Weight: 74.83 kg

DRUGS (2)
  1. PARAGARD T 380A [Suspect]
     Active Substance: COPPER
     Indication: Contraception
     Dosage: UNK
     Route: 015
     Dates: start: 20120726
  2. GABAPENTIN [Concomitant]
     Active Substance: GABAPENTIN
     Indication: Product used for unknown indication
     Route: 065

REACTIONS (12)
  - Lung neoplasm malignant [Unknown]
  - Mammogram abnormal [Unknown]
  - Foreign body in reproductive tract [Not Recovered/Not Resolved]
  - Device material issue [Not Recovered/Not Resolved]
  - Menopause [Not Recovered/Not Resolved]
  - COVID-19 [Recovered/Resolved]
  - Procedural pain [Unknown]
  - Procedural haemorrhage [Recovered/Resolved]
  - Urinary incontinence [Recovered/Resolved]
  - Chest pain [Recovered/Resolved]
  - Anxiety [Recovered/Resolved]
  - Intermenstrual bleeding [Recovered/Resolved]

NARRATIVE: CASE EVENT DATE: 20210101
